FAERS Safety Report 12860970 (Version 4)
Quarter: 2016Q4

REPORT INFORMATION
  Report Type: Report from Study
  Country: DE (occurrence: DE)
  Receive Date: 20161019
  Receipt Date: 20161118
  Transmission Date: 20170207
  Serious: Yes (Death, Life-Threatening, Hospitalization, Other)
  Sender: FDA-Public Use
  Company Number: DE-TEVA-703123ROM

PATIENT
  Sex: Female
  Weight: 118 kg

DRUGS (5)
  1. TREOSULFAN MEDAC [Suspect]
     Active Substance: TREOSULFAN
     Indication: BONE MARROW CONDITIONING REGIMEN
     Dosage: 21 GRAM DAILY;
     Route: 042
     Dates: start: 20160924, end: 20160926
  2. GRAFALON [Suspect]
     Active Substance: LAPINE T-LYMPHOCYTE IMMUNE GLOBULIN
     Indication: BONE MARROW CONDITIONING REGIMEN
     Dosage: 1000 MILLIGRAM DAILY;
     Route: 042
     Dates: start: 20160925, end: 20160926
  3. FLUDARABINE [Suspect]
     Active Substance: FLUDARABINE PHOSPHATE
     Indication: BONE MARROW CONDITIONING REGIMEN
     Dosage: 63 MILLIGRAM DAILY;
     Route: 042
     Dates: start: 20160922, end: 20160926
  4. GRAFALON [Suspect]
     Active Substance: LAPINE T-LYMPHOCYTE IMMUNE GLOBULIN
     Dosage: 700 MILLIGRAM DAILY; REST DOSIS: 700 MILIGRAM
     Route: 042
     Dates: start: 20160924, end: 20160924
  5. GRAFALON [Suspect]
     Active Substance: LAPINE T-LYMPHOCYTE IMMUNE GLOBULIN
     Dosage: 300 MILLIGRAM DAILY; TEST DOSIS: 300 MILIGRAM
     Route: 042
     Dates: start: 20160923, end: 20160923

REACTIONS (3)
  - Atrial tachycardia [Recovered/Resolved with Sequelae]
  - Acute myocardial infarction [Recovering/Resolving]
  - Death [Fatal]

NARRATIVE: CASE EVENT DATE: 20161005
